FAERS Safety Report 12659954 (Version 1)
Quarter: 2016Q3

REPORT INFORMATION
  Report Type: Spontaneous
  Country: US (occurrence: US)
  Receive Date: 20160817
  Receipt Date: 20160817
  Transmission Date: 20161109
  Serious: No
  Sender: FDA-Public Use
  Company Number: US-SHIRE-US201609614

PATIENT
  Age: 60 Year
  Sex: Female

DRUGS (1)
  1. KALBITOR [Suspect]
     Active Substance: ECALLANTIDE
     Indication: HEREDITARY ANGIOEDEMA
     Dosage: 30 MG (3X10 ML), AS REQ^D
     Route: 058

REACTIONS (2)
  - Road traffic accident [Unknown]
  - Neck injury [Unknown]

NARRATIVE: CASE EVENT DATE: 2016
